FAERS Safety Report 23761373 (Version 1)
Quarter: 2024Q2

REPORT INFORMATION
  Report Type: Other
  Country: TH (occurrence: None)
  Receive Date: 20240419
  Receipt Date: 20240419
  Transmission Date: 20240716
  Serious: Yes (Death, Hospitalization)
  Sender: FDA-Public Use
  Company Number: TH-ROCHE-3547794

PATIENT
  Sex: Female

DRUGS (1)
  1. MABTHERA [Suspect]
     Active Substance: RITUXIMAB
     Indication: Product used for unknown indication
     Route: 065
     Dates: start: 20240308

REACTIONS (6)
  - Dyspnoea [Fatal]
  - White blood cell count decreased [Unknown]
  - Blood glucose increased [Unknown]
  - Heart rate irregular [Unknown]
  - Feeding disorder [Unknown]
  - Frequent bowel movements [Unknown]
